FAERS Safety Report 11354018 (Version 1)
Quarter: 2015Q3

REPORT INFORMATION
  Report Type: Spontaneous
  Country: US (occurrence: US)
  Receive Date: 20150807
  Receipt Date: 20150807
  Transmission Date: 20151125
  Serious: No
  Sender: FDA-Public Use
  Company Number: US-JNJFOC-20150210547

PATIENT
  Age: 75 Year
  Sex: Female
  Weight: 60.78 kg

DRUGS (6)
  1. UNSPECIFIED OTC MEDICATIONS [Concomitant]
     Active Substance: UNSPECIFIED INGREDIENT
     Indication: PRODUCT USED FOR UNKNOWN INDICATION
     Route: 065
  2. CALTRATE [Concomitant]
     Active Substance: CALCIUM CARBONATE
     Indication: ROUTINE HEALTH MAINTENANCE
     Route: 065
  3. UNSPECIFIED HERBAL SUPPLEMENTS [Concomitant]
     Active Substance: HERBALS
     Indication: ROUTINE HEALTH MAINTENANCE
     Route: 065
  4. LATANOPROST. [Concomitant]
     Active Substance: LATANOPROST
     Indication: EYE DISORDER
     Route: 065
  5. WOMENS ROGAINE [Suspect]
     Active Substance: MINOXIDIL
     Indication: ALOPECIA
     Route: 061
  6. CENTRUM (MINERALS NOS, VITAMINS NOS) [Concomitant]
     Indication: ROUTINE HEALTH MAINTENANCE
     Route: 065

REACTIONS (2)
  - Alopecia [Not Recovered/Not Resolved]
  - Weight increased [Not Recovered/Not Resolved]
